FAERS Safety Report 15962688 (Version 4)
Quarter: 2019Q2

REPORT INFORMATION
  Report Type: Spontaneous
  Country: GR (occurrence: GR)
  Receive Date: 20190214
  Receipt Date: 20190401
  Transmission Date: 20190711
  Serious: Yes (Death, Other)
  Sender: FDA-Public Use
  Company Number: PHHY2019GR034905

PATIENT
  Age: 59 Year
  Sex: Female

DRUGS (8)
  1. POSACONAZOLE [Concomitant]
     Active Substance: POSACONAZOLE
     Indication: PYREXIA
     Dosage: UNK
     Route: 048
  2. RYDAPT [Suspect]
     Active Substance: MIDOSTAURIN
     Indication: ACUTE MYELOID LEUKAEMIA
     Dosage: UNK
     Route: 065
     Dates: start: 20190124
  3. ACYCLOVIR. [Concomitant]
     Active Substance: ACYCLOVIR
     Indication: PYREXIA
     Dosage: UNK
     Route: 065
  4. MEROPENEM. [Concomitant]
     Active Substance: MEROPENEM
     Indication: PRODUCT USED FOR UNKNOWN INDICATION
     Route: 042
  5. ALPRAZOLAM. [Concomitant]
     Active Substance: ALPRAZOLAM
     Indication: PYREXIA
     Dosage: UNK
     Route: 065
  6. ONDANSETRON [Suspect]
     Active Substance: ONDANSETRON
     Indication: PYREXIA
     Dosage: UNK
     Route: 065
  7. METOCLOPRAMIDE. [Concomitant]
     Active Substance: METOCLOPRAMIDE
     Indication: PYREXIA
     Dosage: UNK
     Route: 065
  8. RYDAPT [Suspect]
     Active Substance: MIDOSTAURIN
     Dosage: 50 MG, UNK
     Route: 048
     Dates: start: 20190128

REACTIONS (5)
  - Cytopenia [Fatal]
  - Electrocardiogram QT prolonged [Fatal]
  - Cardiac arrest [Fatal]
  - Blood phosphorus increased [Fatal]
  - Myocardial ischaemia [Fatal]
